FAERS Safety Report 5022423-2 (Version None)
Quarter: 2006Q2

REPORT INFORMATION
  Report Type: 
  Country: None (occurrence: None)
  Receive Date: 20060605
  Receipt Date: 20060508
  Transmission Date: 20061013
  Serious: Yes (Hospitalization)
  Sender: FDA-Public Use
  Company Number: 225604

PATIENT
  Age: 58 Year
  Sex: Female
  Weight: 112 kg

DRUGS (6)
  1. HERCEPTIN [Suspect]
     Indication: BREAST CANCER
     Dosage: 900 MG, INTRAVENOUS
     Route: 042
     Dates: start: 20040908
  2. CAPECITABINE (CAPECITABINE) [Suspect]
     Indication: BREAST CANCER
     Dosage: 5600 MG, QD, ORAL
     Route: 048
     Dates: start: 20040908, end: 20040915
  3. LISINOPRIL [Concomitant]
  4. PANTOPRAZOLE [Concomitant]
  5. DICLOFENAC SODIUM [Concomitant]
  6. INDAPAMIDE [Concomitant]

REACTIONS (1)
  - MYOCARDIAL INFARCTION [None]
